FAERS Safety Report 9971511 (Version 1)
Quarter: 2014Q1

REPORT INFORMATION
  Report Type: Report from Study
  Country: US (occurrence: US)
  Receive Date: 20140306
  Receipt Date: 20140306
  Transmission Date: 20141002
  Serious: No
  Sender: FDA-Public Use
  Company Number: US-ABBVIE-13P-163-1149915-00

PATIENT
  Age: 64 Year
  Sex: Female
  Weight: 93.07 kg

DRUGS (6)
  1. HUMIRA [Suspect]
     Indication: CROHN^S DISEASE
     Dates: start: 201307, end: 201307
  2. HUMIRA [Suspect]
     Dates: start: 201307, end: 201307
  3. HUMIRA [Suspect]
     Dates: start: 201308
  4. KLONOPIN [Concomitant]
     Indication: ANXIETY
  5. XANAX [Concomitant]
     Indication: ANXIETY
  6. PROTONIX [Concomitant]
     Indication: DYSPEPSIA

REACTIONS (4)
  - Asthma [Recovered/Resolved]
  - Dyspnoea [Recovered/Resolved]
  - Injection site pain [Not Recovered/Not Resolved]
  - Injection site swelling [Not Recovered/Not Resolved]
